FAERS Safety Report 6921719-4 (Version None)
Quarter: 2010Q3

REPORT INFORMATION
  Report Type: 
  Country: None (occurrence: None)
  Receive Date: 20100812
  Receipt Date: 20100804
  Transmission Date: 20110219
  Serious: Yes (Other)
  Sender: FDA-Public Use
  Company Number: US-GENZYME-THYM-1001731

PATIENT
  Age: 2 Year
  Sex: Female

DRUGS (5)
  1. THYMOGLOBULIN [Suspect]
     Indication: PROPHYLAXIS AGAINST TRANSPLANT REJECTION
     Dosage: 1.5 MG/KG, UNK
     Route: 042
     Dates: start: 20100101, end: 20100101
  2. THYMOGLOBULIN [Suspect]
     Dosage: 1 MG/KG, ONCE
     Route: 042
  3. PROGRAF [Concomitant]
     Indication: IMMUNOSUPPRESSION
  4. CELLCEPT [Concomitant]
     Indication: IMMUNOSUPPRESSION
  5. PREDNISONE TAB [Concomitant]
     Indication: IMMUNOSUPPRESSION

REACTIONS (1)
  - PNEUMATOSIS [None]
